FAERS Safety Report 5932857-7 (Version None)
Quarter: 2008Q4

REPORT INFORMATION
  Report Type: 
  Country: None (occurrence: None)
  Receive Date: 20081027
  Receipt Date: 20081027
  Transmission Date: 20090506
  Serious: Yes (Other)
  Sender: FDA-Public Use
  Company Number: None

PATIENT
  Sex: Female
  Weight: 61.2356 kg

DRUGS (2)
  1. SINGULAIR [Suspect]
     Indication: ASTHMA
     Dosage: 1X DAILY PO
     Route: 048
     Dates: start: 20070207, end: 20081017
  2. SINGULAIR [Suspect]
     Indication: MULTIPLE ALLERGIES
     Dosage: 1X DAILY PO
     Route: 048
     Dates: start: 20070207, end: 20081017

REACTIONS (6)
  - ABNORMAL BEHAVIOUR [None]
  - AGITATION [None]
  - DEPRESSION [None]
  - FEELING OF DESPAIR [None]
  - MOOD SWINGS [None]
  - SUICIDAL IDEATION [None]
